FAERS Safety Report 8416064 (Version 2)
Quarter: 2013Q1

REPORT INFORMATION
  Report Type: Spontaneous
  Country: US (occurrence: US)
  Receive Date: 20120218
  Receipt Date: 20130119
  Transmission Date: 20140127
  Serious: No
  Sender: FDA-Public Use
  Company Number: US-ALLERGAN-1115051US

PATIENT
  Age: 45 None
  Sex: Male

DRUGS (3)
  1. BOTOX COSMETIC [Suspect]
     Indication: SKIN WRINKLING
     Dosage: 20 UNITS, SINGLE
     Route: 030
     Dates: start: 20111103, end: 20111103
  2. BOTOX COSMETIC [Suspect]
     Indication: SKIN WRINKLING
     Dosage: 24 UNITS, SINGLE
     Route: 030
     Dates: start: 20111103, end: 20111103
  3. BOTOX COSMETIC [Suspect]
     Dosage: 10 UNITS, SINGLE
     Route: 030
     Dates: start: 20111103, end: 20111103

REACTIONS (9)
  - Disturbance in attention [Recovering/Resolving]
  - Lethargy [Recovering/Resolving]
  - Eye pain [Recovering/Resolving]
  - Mydriasis [Recovering/Resolving]
  - Dizziness [Recovering/Resolving]
  - Facial paresis [Recovering/Resolving]
  - Headache [Recovering/Resolving]
  - Vision blurred [Recovering/Resolving]
  - Diplopia [Recovering/Resolving]
